FAERS Safety Report 20042169 (Version 2)
Quarter: 2021Q4

REPORT INFORMATION
  Report Type: Spontaneous
  Country: US (occurrence: US)
  Receive Date: 20211108
  Receipt Date: 20211207
  Transmission Date: 20220303
  Serious: Yes (Other)
  Sender: FDA-Public Use
  Company Number: US-LUPIN PHARMACEUTICALS INC.-2021-21754

PATIENT
  Age: 74 Year
  Sex: Female

DRUGS (1)
  1. VANCOMYCIN [Suspect]
     Active Substance: VANCOMYCIN
     Indication: Infection prophylaxis
     Dosage: UNK, (0.1 ML OF 1 MG/0.1 ML CONCENTRATION; MIXED IN THE FACILITY).

REACTIONS (2)
  - Hypersensitivity [Recovered/Resolved]
  - Haemorrhagic occlusive retinal vasculitis [Recovered/Resolved]
